FAERS Safety Report 6674000-5 (Version None)
Quarter: 2010Q2

REPORT INFORMATION
  Report Type: 
  Country: None (occurrence: None)
  Receive Date: 20100409
  Receipt Date: 20090911
  Transmission Date: 20101027
  Serious: No
  Sender: FDA-Public Use
  Company Number: A0806920A

PATIENT
  Age: 49 Year
  Sex: Male

DRUGS (1)
  1. CLOBETASOL PROPIONATE [Suspect]
     Indication: LOCAL SWELLING
     Dosage: 1APP TWICE PER DAY
     Route: 061
     Dates: start: 20090701, end: 20090815

REACTIONS (2)
  - DRUG INEFFECTIVE [None]
  - SKIN HYPOPIGMENTATION [None]
